FAERS Safety Report 23433677 (Version 2)
Quarter: 2025Q1

REPORT INFORMATION
  Report Type: Spontaneous
  Country: US (occurrence: US)
  Receive Date: 20240123
  Receipt Date: 20250310
  Transmission Date: 20250409
  Serious: No
  Sender: PFIZER
  Company Number: US-PFIZER INC-PV202300208817

PATIENT
  Age: 68 Year
  Sex: Female
  Weight: 143 kg

DRUGS (1)
  1. PAXLOVID [Suspect]
     Active Substance: NIRMATRELVIR\RITONAVIR
     Indication: COVID-19 treatment
     Dosage: [NIRMATRELVIR 150 MG]/[RITONAVIR 100 MG]; 2X/DAY
     Dates: start: 20231224

REACTIONS (1)
  - Dysgeusia [Unknown]
